FAERS Safety Report 8279121-1 (Version None)
Quarter: 2012Q2

REPORT INFORMATION
  Report Type: 
  Country: None (occurrence: None)
  Receive Date: 20120412
  Receipt Date: 20110309
  Transmission Date: 20120825
  Serious: No
  Sender: FDA-Public Use
  Company Number: US-ASTRAZENECA-2011SE13611

PATIENT
  Age: 76 Year
  Sex: Female

DRUGS (3)
  1. NEXIUM [Suspect]
  2. CRESTOR [Suspect]
     Route: 048
  3. TOPROL-XL [Suspect]
     Route: 048

REACTIONS (5)
  - BRONCHITIS [None]
  - INTERVERTEBRAL DISC PROTRUSION [None]
  - CANDIDIASIS [None]
  - HEADACHE [None]
  - DRUG HYPERSENSITIVITY [None]
